FAERS Safety Report 21024368 (Version 1)
Quarter: 2022Q2

REPORT INFORMATION
  Report Type: Spontaneous
  Country: VN (occurrence: VN)
  Receive Date: 20220629
  Receipt Date: 20220629
  Transmission Date: 20220721
  Serious: Yes (Other)
  Sender: FDA-Public Use
  Company Number: VN-BAYER-2022P006070

PATIENT
  Age: 85 Year
  Sex: Male

DRUGS (2)
  1. REGORAFENIB [Suspect]
     Active Substance: REGORAFENIB
     Indication: Colorectal cancer metastatic
     Dosage: 200 MG, BID
     Route: 048
     Dates: start: 202103, end: 202104
  2. REGORAFENIB [Suspect]
     Active Substance: REGORAFENIB
     Indication: Colorectal cancer metastatic
     Dosage: 200 MG, TID
     Route: 048
     Dates: start: 202104, end: 202106

REACTIONS (2)
  - Colorectal cancer metastatic [None]
  - Off label use [None]

NARRATIVE: CASE EVENT DATE: 20210301
